FAERS Safety Report 13471021 (Version 1)
Quarter: 2017Q2

REPORT INFORMATION
  Report Type: Report from Study
  Country: US (occurrence: US)
  Receive Date: 20170424
  Receipt Date: 20170424
  Transmission Date: 20170830
  Serious: No
  Sender: FDA-Public Use
  Company Number: US-AMGEN-USASL2017058792

PATIENT
  Age: 47 Year
  Sex: Female

DRUGS (1)
  1. ENBREL [Suspect]
     Active Substance: ETANERCEPT
     Indication: ANKYLOSING SPONDYLITIS
     Dosage: 50 MG, QWK
     Route: 065
     Dates: start: 201703

REACTIONS (7)
  - Injection site pruritus [Recovered/Resolved]
  - Therapy non-responder [Not Recovered/Not Resolved]
  - Injection site swelling [Recovered/Resolved]
  - Pain in extremity [Not Recovered/Not Resolved]
  - Injection site rash [Recovered/Resolved]
  - Injection site pain [Unknown]
  - Sleep disorder [Recovered/Resolved]

NARRATIVE: CASE EVENT DATE: 201703
